FAERS Safety Report 4431941-7 (Version None)
Quarter: 2004Q3

REPORT INFORMATION
  Report Type: 
  Country: None (occurrence: None)
  Receive Date: 20040818
  Receipt Date: 20040719
  Transmission Date: 20050211
  Serious: Yes (Other)
  Sender: FDA-Public Use
  Company Number: USA040774138

PATIENT
  Age: 55 Year
  Sex: Female

DRUGS (1)
  1. EVISTA [Suspect]
     Indication: OSTEOPENIA
     Dosage: 60 MG DAY
     Dates: start: 20020901

REACTIONS (2)
  - BLINDNESS [None]
  - RETINAL VEIN THROMBOSIS [None]
